FAERS Safety Report 9642556 (Version 1)
Quarter: 2013Q4

REPORT INFORMATION
  Report Type: Spontaneous
  Country: GB (occurrence: GB)
  Receive Date: 20131024
  Receipt Date: 20131024
  Transmission Date: 20140711
  Serious: Yes (Other)
  Sender: FDA-Public Use
  Company Number: GB-RANBAXY-2013R1-74305

PATIENT
  Age: 38 Year
  Sex: Female
  Weight: 57.15 kg

DRUGS (2)
  1. SERTRALINE [Suspect]
     Indication: ANXIETY
     Dosage: UNK
     Route: 048
     Dates: start: 20130909, end: 20130927
  2. SERTRALINE [Suspect]
     Indication: DEPRESSION

REACTIONS (1)
  - Acne cystic [Not Recovered/Not Resolved]
